FAERS Safety Report 25550371 (Version 1)
Quarter: 2025Q3

REPORT INFORMATION
  Report Type: Spontaneous
  Country: QA (occurrence: QA)
  Receive Date: 20250714
  Receipt Date: 20250714
  Transmission Date: 20251020
  Serious: Yes (Hospitalization, Other)
  Sender: Norvium Bioscience
  Company Number: QA-Norvium Bioscience LLC-080391

PATIENT
  Age: 58 Year
  Sex: Female

DRUGS (2)
  1. HEPARIN SODIUM [Suspect]
     Active Substance: HEPARIN SODIUM
     Indication: Thrombosis in device
  2. PYRIDOSTIGMINE [Concomitant]
     Active Substance: PYRIDOSTIGMINE
     Indication: Myasthenia gravis
     Route: 048

REACTIONS (4)
  - Heparin-induced thrombocytopenia [Recovered/Resolved]
  - Cerebral venous sinus thrombosis [Recovered/Resolved]
  - Anaemia [Recovered/Resolved]
  - Reticulocytosis [Recovered/Resolved]
